FAERS Safety Report 5245955-0 (Version None)
Quarter: 2007Q1

REPORT INFORMATION
  Report Type: 
  Country: None (occurrence: None)
  Receive Date: 20070220
  Receipt Date: 20000522
  Transmission Date: 20070707
  Serious: Yes (Hospitalization)
  Sender: FDA-Public Use
  Company Number: 31001L00DEU

PATIENT
  Age: 35 Year
  Sex: Female

DRUGS (5)
  1. FOLLITROPIN ALPHA (FOLLITROPIN ALFA) [Suspect]
     Indication: OVARIAN FAILURE
     Dosage: IU (225 IU, 1 IN 1 DAYS)
  2. CHORIONIC GONADOTROPIN [Concomitant]
  3. FOLLITROPIN ALPHA (FOLLITROPIN ALFA) [Concomitant]
  4. PROGESTERONE [Concomitant]
  5. GONADORELIN INJ [Concomitant]

REACTIONS (2)
  - MYOCARDIAL INFARCTION [None]
  - OVARIAN HYPERSTIMULATION SYNDROME [None]
